FAERS Safety Report 5227246-7 (Version None)
Quarter: 2007Q1

REPORT INFORMATION
  Report Type: 
  Country: None (occurrence: None)
  Receive Date: 20070202
  Receipt Date: 20070126
  Transmission Date: 20070707
  Serious: Yes (Hospitalization)
  Sender: FDA-Public Use
  Company Number: US-AVENTIS-200710788GDDC

PATIENT
  Age: 43 Year
  Sex: Male
  Weight: 83.4 kg

DRUGS (10)
  1. TAXOTERE [Suspect]
     Route: 042
     Dates: start: 20070108, end: 20070108
  2. CETUXIMAB [Suspect]
     Route: 042
     Dates: start: 20070108, end: 20070108
  3. RADIATION THERAPY [Suspect]
     Dosage: DOSE: TOTAL DOSE 63 GY
  4. FENTANYL TRANSDERMAL SYSTEM [Concomitant]
     Dosage: DOSE: UNK
  5. FLUCONAZOLE [Concomitant]
     Dosage: DOSE: UNK
  6. HADDAD'S SOLUTION [Concomitant]
     Dosage: DOSE: UNK
  7. MINOCYCLINE HCL [Concomitant]
     Dosage: DOSE: UNK
  8. ROXICET [Concomitant]
     Dosage: DOSE: UNK
  9. SENOKOT                            /00142201/ [Concomitant]
     Dosage: DOSE: UNK
  10. LIDOCAINE HCL VISCOUS [Concomitant]
     Dosage: DOSE: UNK

REACTIONS (4)
  - HYPOKALAEMIA [None]
  - NAUSEA [None]
  - RASH [None]
  - VOMITING [None]
